FAERS Safety Report 8021556-6 (Version None)
Quarter: 2012Q1

REPORT INFORMATION
  Report Type: 
  Country: None (occurrence: None)
  Receive Date: 20120104
  Receipt Date: 20111231
  Transmission Date: 20120608
  Serious: Yes (Other)
  Sender: FDA-Public Use
  Company Number: US-TEVA-312793USA

PATIENT
  Sex: Female

DRUGS (2)
  1. YAZ [Concomitant]
     Route: 048
  2. CLARAVIS [Suspect]
     Route: 048
     Dates: start: 20110308, end: 20111101

REACTIONS (1)
  - UNINTENDED PREGNANCY [None]
